FAERS Safety Report 15851138 (Version 1)
Quarter: 2019Q1

REPORT INFORMATION
  Report Type: Spontaneous
  Country: DE (occurrence: DE)
  Receive Date: 20190122
  Receipt Date: 20190122
  Transmission Date: 20190417
  Serious: Yes (Other)
  Sender: FDA-Public Use
  Company Number: DE-AUROBINDO-AUR-APL-2019-001075

PATIENT
  Age: 1 Day
  Sex: Male
  Weight: 2.58 kg

DRUGS (3)
  1. QUETIAPINE. [Suspect]
     Active Substance: QUETIAPINE
     Indication: BORDERLINE PERSONALITY DISORDER
     Dosage: 200 [MG/D ]/ RETARD PREPARATION. DOSE REDUCTION TO 150 MG AT GW 15 4/7, TO 100 MG AT GW 36 1/7
     Route: 064
     Dates: start: 20170604, end: 20180307
  2. CITALOPRAM [Suspect]
     Active Substance: CITALOPRAM HYDROBROMIDE
     Indication: BORDERLINE PERSONALITY DISORDER
     Dosage: 20 [MG/D ]/ 20 MG/D UNTIL GW 38 5/7
     Route: 064
     Dates: start: 20170604, end: 20180307
  3. XANAFLU [Concomitant]
     Active Substance: INFLUENZA VIRUS VACCINE
     Indication: IMMUNISATION
     Dosage: UNK
     Route: 064
     Dates: start: 20171027, end: 20171027

REACTIONS (2)
  - Foetal exposure during pregnancy [Unknown]
  - Small for dates baby [Recovered/Resolved]

NARRATIVE: CASE EVENT DATE: 20180307
